FAERS Safety Report 8166655-3 (Version None)
Quarter: 2012Q1

REPORT INFORMATION
  Report Type: 
  Country: None (occurrence: None)
  Receive Date: 20120227
  Receipt Date: 20120222
  Transmission Date: 20120608
  Serious: Yes (Other)
  Sender: FDA-Public Use
  Company Number: BE-BAYER-2012-015094

PATIENT
  Age: 72 Year
  Sex: Male

DRUGS (10)
  1. NEXAVAR [Suspect]
     Indication: HEPATIC NEOPLASM MALIGNANT
     Dosage: 800 MG, QD
     Dates: start: 20120117
  2. ONGLYZA [Concomitant]
     Dosage: 5 MG, QD
  3. AMLODIPINE BESYLATE [Concomitant]
     Indication: HYPERTENSION
     Dosage: 1 DF, QD
  4. OLMESARTAN MEDOXOMIL [Concomitant]
     Indication: HYPERTENSION
     Dosage: 1 DF, QD
  5. NEXAVAR [Suspect]
     Dosage: 400 MG, QD
     Dates: start: 20120101, end: 20120101
  6. ATACAND HCT [Concomitant]
     Indication: HYPERTENSION
     Dosage: 1 DF, QD
  7. METFORMIN HCL [Concomitant]
     Dosage: 850 MG, TID
  8. ASPIRIN [Concomitant]
     Indication: CEREBROVASCULAR ACCIDENT
     Dosage: 80 MG, UNK
  9. NEXAVAR [Suspect]
     Dosage: 600 MG, QD
     Dates: start: 20120101
  10. NOBITEN [Concomitant]
     Dosage: 1 DF, QD

REACTIONS (3)
  - APHASIA [None]
  - CEREBROVASCULAR ACCIDENT [None]
  - DIARRHOEA [None]
